FAERS Safety Report 6947964-X (Version None)
Quarter: 2010Q3

REPORT INFORMATION
  Report Type: 
  Country: None (occurrence: None)
  Receive Date: 20100828
  Receipt Date: 20091009
  Transmission Date: 20110219
  Serious: No
  Sender: FDA-Public Use
  Company Number: US-ABBOTT-09P-163-0602404-00

PATIENT
  Sex: Female
  Weight: 57.204 kg

DRUGS (3)
  1. NIASPAN [Suspect]
     Indication: LOW DENSITY LIPOPROTEIN INCREASED
     Dates: start: 20070101
  2. NORVASC [Concomitant]
     Indication: PRODUCT USED FOR UNKNOWN INDICATION
     Dosage: 5 MG DAILY
  3. LEVOTHYROXINE SODIUM TABLETS( SYNTHROID ) [Concomitant]
     Indication: HYPOTHYROIDISM
     Dosage: 100 MG DAILY

REACTIONS (2)
  - PRURITUS [None]
  - SKIN BURNING SENSATION [None]
